FAERS Safety Report 8024466-3 (Version None)
Quarter: 2012Q1

REPORT INFORMATION
  Report Type: 
  Country: None (occurrence: None)
  Receive Date: 20120103
  Receipt Date: 20111222
  Transmission Date: 20120608
  Serious: Yes (Hospitalization)
  Sender: FDA-Public Use
  Company Number: 2011SP059825

PATIENT
  Age: 43 Year
  Sex: Male

DRUGS (8)
  1. NEURONTIN [Concomitant]
  2. ZYRTEC [Concomitant]
  3. SINGULAIR [Concomitant]
  4. PREDNISONE TAB [Concomitant]
  5. RISPERIDONE [Concomitant]
  6. REMERON SOLTAB [Suspect]
     Indication: PRODUCT USED FOR UNKNOWN INDICATION
     Dates: start: 20110701, end: 20111222
  7. ZOLOFT [Concomitant]
  8. TEGRETOL [Concomitant]

REACTIONS (4)
  - RASH GENERALISED [None]
  - PRURITUS [None]
  - HEADACHE [None]
  - SYNCOPE [None]
